FAERS Safety Report 4555292-5 (Version None)
Quarter: 2005Q1

REPORT INFORMATION
  Report Type: 
  Country: None (occurrence: None)
  Receive Date: 20041227
  Receipt Date: 20040503
  Transmission Date: 20050727
  Serious: No
  Sender: FDA-Public Use
  Company Number: US075147

PATIENT
  Age: 57 Year
  Sex: Female

DRUGS (1)
  1. ARANESP [Suspect]
     Indication: ANAEMIA OF MALIGNANT DISEASE
     Dosage: AS NECESSARY
     Dates: start: 20030606, end: 20040326

REACTIONS (2)
  - FATIGUE [None]
  - HOT FLUSH [None]
